FAERS Safety Report 10041705 (Version 1)
Quarter: 2014Q1

REPORT INFORMATION
  Report Type: Spontaneous
  Country: US (occurrence: US)
  Receive Date: 20140327
  Receipt Date: 20140327
  Transmission Date: 20141002
  Serious: No
  Sender: FDA-Public Use
  Company Number: US-PFIZER INC-2014085839

PATIENT
  Age: 72 Year
  Sex: Female
  Weight: 54.42 kg

DRUGS (6)
  1. VENLAFAXINE HCL [Suspect]
     Indication: DEPRESSION
     Dosage: 150 MG, ONCE A DAY
     Route: 048
  2. NEXIUM [Concomitant]
     Dosage: 40 MG, TWICE A DAY
  3. LISINOPRIL [Concomitant]
     Dosage: 20 MG, DAILY
  4. SIMVASTATIN [Concomitant]
     Dosage: 80 MG, DAILY
  5. LEVOTHYROXINE [Concomitant]
     Dosage: 50 MCG AND 75 MCG BOTH, ALTERNATE DAYS
  6. VITAMIN D3 [Concomitant]
     Dosage: 2000 IU, DAILY

REACTIONS (1)
  - Feeling abnormal [Unknown]
